FAERS Safety Report 8026781-6 (Version None)
Quarter: 2012Q1

REPORT INFORMATION
  Report Type: 
  Country: None (occurrence: None)
  Receive Date: 20120106
  Receipt Date: 20111230
  Transmission Date: 20120608
  Serious: No
  Sender: FDA-Public Use
  Company Number: US-BIOGENIDEC-2012BI000096

PATIENT
  Sex: Female

DRUGS (3)
  1. IBUPROFEN (ADVIL) [Concomitant]
     Indication: PAIN
  2. LORAZEPAM [Concomitant]
     Indication: PAIN
  3. AVONEX [Suspect]
     Indication: MULTIPLE SCLEROSIS
     Route: 030
     Dates: start: 20110509

REACTIONS (3)
  - PARANASAL SINUS HYPERSECRETION [None]
  - DYSGEUSIA [None]
  - INFLUENZA LIKE ILLNESS [None]
